FAERS Safety Report 21294468 (Version 1)
Quarter: 2022Q3

REPORT INFORMATION
  Report Type: Spontaneous
  Country: CN (occurrence: CN)
  Receive Date: 20220905
  Receipt Date: 20220905
  Transmission Date: 20221026
  Serious: Yes (Other)
  Sender: FDA-Public Use
  Company Number: CN-009507513-2208CHN011752

PATIENT
  Age: 58 Year
  Sex: Male
  Weight: 63 kg

DRUGS (6)
  1. JANUVIA [Suspect]
     Active Substance: SITAGLIPTIN PHOSPHATE
     Indication: Diabetic complication
     Dosage: 100MG QD
     Route: 048
     Dates: start: 20220823, end: 20220824
  2. JANUVIA [Suspect]
     Active Substance: SITAGLIPTIN PHOSPHATE
     Indication: Diabetes mellitus
  3. GLUCOPHAGE [Suspect]
     Active Substance: METFORMIN HYDROCHLORIDE
     Indication: Diabetic complication
     Dosage: 0.5G, TID
     Route: 048
     Dates: start: 20220823, end: 20220824
  4. GLUCOPHAGE [Suspect]
     Active Substance: METFORMIN HYDROCHLORIDE
     Indication: Diabetes mellitus
  5. GLIPIZIDE [Suspect]
     Active Substance: GLIPIZIDE
     Indication: Diabetic complication
     Dosage: 5MG, QD, FORMULATION: SUSTAINED-RELEASE TABLET
     Route: 048
     Dates: start: 20220823, end: 20220824
  6. GLIPIZIDE [Suspect]
     Active Substance: GLIPIZIDE
     Indication: Diabetes mellitus

REACTIONS (4)
  - Diabetes mellitus [Unknown]
  - Ketosis [Recovering/Resolving]
  - Hypoglycaemia [Recovered/Resolved]
  - Decreased appetite [Recovering/Resolving]

NARRATIVE: CASE EVENT DATE: 20220824
